FAERS Safety Report 15768251 (Version 3)
Quarter: 2019Q2

REPORT INFORMATION
  Report Type: Spontaneous
  Country: CA (occurrence: CA)
  Receive Date: 20181227
  Receipt Date: 20190429
  Transmission Date: 20190711
  Serious: Yes (Other)
  Sender: FDA-Public Use
  Company Number: CA-PFIZER INC-2018529654

PATIENT
  Age: 72 Year
  Sex: Male

DRUGS (25)
  1. ROSUVASTATIN. [Concomitant]
     Active Substance: ROSUVASTATIN
     Dosage: 10 MG, DAILY
     Route: 048
  2. FERROUS POLYSACCHARIDE [Concomitant]
     Dosage: 1 CAPSULE EVERY SECOND DAY
     Route: 048
  3. PANTOPRAZOLE [Concomitant]
     Active Substance: PANTOPRAZOLE
     Dosage: 40 MG, DAILY
     Route: 048
     Dates: start: 20130529
  4. ATROVENT [Concomitant]
     Active Substance: IPRATROPIUM BROMIDE
     Dosage: 3 PUFFS 3X/DAY, AS NEEDED
     Dates: start: 20180122
  5. FUROSEMIDE. [Concomitant]
     Active Substance: FUROSEMIDE
     Dosage: 40 MG, DAILY
     Route: 048
     Dates: start: 20160713
  6. FERAMAX 150 [Concomitant]
     Dosage: 400 MG, DAILY
     Route: 048
     Dates: start: 20130906
  7. VENTOLIN [Concomitant]
     Active Substance: ALBUTEROL SULFATE
     Dosage: 2 PUFFS, 4X/DAY
     Dates: start: 20120910
  8. SYMBICORT [Concomitant]
     Active Substance: BUDESONIDE\FORMOTEROL FUMARATE DIHYDRATE
     Dosage: 2 INHALATIONS, 2X/DAY
     Route: 055
     Dates: start: 20171227
  9. COMBIVENT RESPIMAT [Concomitant]
     Active Substance: ALBUTEROL SULFATE\IPRATROPIUM BROMIDE
     Dosage: CFC 20 MCG/100 MCG, 1 PUFF, 4X/DAY
     Dates: start: 20190111
  10. TERAZOSIN [Concomitant]
     Active Substance: TERAZOSIN\TERAZOSIN HYDROCHLORIDE
     Dosage: 2.5 MG, DAILY
     Route: 048
     Dates: start: 20160831
  11. SODIUM BICARBONATE. [Concomitant]
     Active Substance: SODIUM BICARBONATE
     Dosage: 500 MG, 2X/DAY
     Route: 048
  12. LEFLUNOMIDE. [Concomitant]
     Active Substance: LEFLUNOMIDE
     Dosage: UNK
     Dates: start: 2009
  13. METHOTREXATE SODIUM. [Suspect]
     Active Substance: METHOTREXATE SODIUM
     Dosage: UNK
     Dates: start: 2006, end: 2007
  14. KAYEXALATE [Concomitant]
     Active Substance: SODIUM POLYSTYRENE SULFONATE
     Dosage: 15 G, DAILY
     Route: 048
     Dates: start: 20140829
  15. HYDROXYCHLOROQUINE [Concomitant]
     Active Substance: HYDROXYCHLOROQUINE
     Dosage: 400 MG, DAILY
     Route: 048
  16. RITUXAN [Concomitant]
     Active Substance: RITUXIMAB
     Dosage: 200 G, UNK
     Dates: start: 2008
  17. METHOTREXATE SODIUM. [Suspect]
     Active Substance: METHOTREXATE SODIUM
     Indication: RHEUMATOID ARTHRITIS
     Dosage: UNK
     Dates: start: 1999, end: 2004
  18. METHOTREXATE SODIUM. [Suspect]
     Active Substance: METHOTREXATE SODIUM
     Dosage: UNK
     Dates: start: 2009
  19. METOPROLOL. [Concomitant]
     Active Substance: METOPROLOL
     Dosage: 75 MG, 2X/DAY
     Route: 048
     Dates: start: 20160831
  20. HYDRALAZINE [Concomitant]
     Active Substance: HYDRALAZINE HYDROCHLORIDE
     Dosage: 10 MG, 3X/DAY
     Route: 048
     Dates: start: 20160713
  21. ASA [Concomitant]
     Active Substance: ASPIRIN
     Dosage: 81 MG, 1X/DAY
     Route: 048
     Dates: start: 20170728
  22. PLAQUENIL [Concomitant]
     Active Substance: HYDROXYCHLOROQUINE SULFATE
     Dosage: UNK
     Dates: start: 2013
  23. ZOPICLONE [Concomitant]
     Active Substance: ZOPICLONE
     Dosage: 5 MG, AS NEEDED
     Route: 048
  24. SULFASALAZINE. [Concomitant]
     Active Substance: SULFASALAZINE
     Indication: RHEUMATOID ARTHRITIS
     Dosage: UNK
     Dates: start: 1999, end: 2004
  25. ENBREL [Concomitant]
     Active Substance: ETANERCEPT
     Indication: RHEUMATOID ARTHRITIS
     Dosage: UNK
     Dates: start: 2006, end: 2007

REACTIONS (29)
  - Dysuria [Unknown]
  - Myocardial infarction [Unknown]
  - Malaise [Unknown]
  - Intermittent claudication [Unknown]
  - Asthma-chronic obstructive pulmonary disease overlap syndrome [Unknown]
  - Aortic aneurysm [Unknown]
  - Inguinal hernia [Unknown]
  - Pneumonia [Unknown]
  - Wound infection [Unknown]
  - Chronic obstructive pulmonary disease [Unknown]
  - Synovial disorder [Unknown]
  - Cervical spinal stenosis [Unknown]
  - Pain in extremity [Unknown]
  - Back pain [Unknown]
  - Abdominal pain upper [Unknown]
  - Gait disturbance [Unknown]
  - Renal failure [Unknown]
  - Peripheral artery occlusion [Unknown]
  - Coronary artery disease [Unknown]
  - Peripheral venous disease [Unknown]
  - Postoperative wound infection [Unknown]
  - Diverticulum [Unknown]
  - Periarthritis [Unknown]
  - Peripheral vascular disorder [Unknown]
  - Condition aggravated [Not Recovered/Not Resolved]
  - Pancytopenia [Unknown]
  - Renal aneurysm [Unknown]
  - Lumbar hernia [Recovered/Resolved]
  - Cervical radiculopathy [Unknown]

NARRATIVE: CASE EVENT DATE: 1999
